FAERS Safety Report 5587752-2 (Version None)
Quarter: 2007Q4

REPORT INFORMATION
  Report Type: 
  Country: None (occurrence: None)
  Receive Date: 20071207
  Receipt Date: 20061010
  Transmission Date: 20080405
  Serious: Yes (Other)
  Sender: FDA-Public Use
  Company Number: 31270

PATIENT
  Age: 93 Year
  Sex: Female

DRUGS (11)
  1. AMIODARONE HCL [Suspect]
     Indication: ATRIAL FIBRILLATION
     Dosage: 900MG/IV
     Route: 042
     Dates: start: 20061009, end: 20061010
  2. VITAMIN CAP [Concomitant]
  3. ATENOLOL [Concomitant]
  4. COLACE [Concomitant]
  5. MIRALAX [Concomitant]
  6. CALCIUM [Concomitant]
  7. PROTONIX [Concomitant]
  8. SPIRONOLACTONE [Concomitant]
  9. TRAMADOL HCL [Concomitant]
  10. COUMADIN [Concomitant]
  11. LOVENOX [Concomitant]

REACTIONS (1)
  - EXTRAVASATION [None]
